FAERS Safety Report 8456546-2 (Version None)
Quarter: 2012Q2

REPORT INFORMATION
  Report Type: 
  Country: None (occurrence: None)
  Receive Date: 20120621
  Receipt Date: 20120614
  Transmission Date: 20120825
  Serious: Yes (Other)
  Sender: FDA-Public Use
  Company Number: BE-ABBOTT-12P-013-0932326-00

PATIENT
  Age: 21 Year
  Sex: Female

DRUGS (1)
  1. VALPROATE SODIUM [Suspect]
     Indication: EPILEPSY
     Route: 051

REACTIONS (3)
  - EPILEPSY [None]
  - DRUG ADMINISTRATION ERROR [None]
  - SOMNOLENCE [None]
